FAERS Safety Report 9954467 (Version 2)
Quarter: 2014Q1

REPORT INFORMATION
  Report Type: Report from Study
  Country: US (occurrence: US)
  Receive Date: 20140304
  Receipt Date: 20140304
  Transmission Date: 20141002
  Serious: No
  Sender: FDA-Public Use
  Company Number: US-ABBVIE-13P-163-1052683-00

PATIENT
  Age: 30 Year
  Sex: Male

DRUGS (4)
  1. HUMIRA [Suspect]
     Indication: CROHN^S DISEASE
     Route: 058
     Dates: start: 20130203, end: 20130203
  2. HUMIRA [Suspect]
     Route: 058
     Dates: start: 20130217, end: 20130217
  3. HUMIRA [Suspect]
     Route: 058
  4. DEXILANT [Concomitant]
     Indication: BARRETT^S OESOPHAGUS

REACTIONS (1)
  - Lip swelling [Not Recovered/Not Resolved]
